FAERS Safety Report 25166479 (Version 3)
Quarter: 2025Q4

REPORT INFORMATION
  Report Type: Spontaneous
  Country: US (occurrence: US)
  Receive Date: 20250407
  Receipt Date: 20251204
  Transmission Date: 20260118
  Serious: Yes (Other)
  Sender: CATALYST PHARMA
  Company Number: US-CATALYST PHARMACEUTICALS-US-CATA-25-00468

PATIENT
  Age: 8 Year
  Sex: Male
  Weight: 21.954 kg

DRUGS (10)
  1. AGAMREE [Suspect]
     Active Substance: VAMOROLONE
     Indication: Duchenne muscular dystrophy
     Dosage: 2.8 ML DAILY
     Route: 048
     Dates: start: 20240906, end: 20241212
  2. AGAMREE [Suspect]
     Active Substance: VAMOROLONE
     Dosage: 3.1 ML DAILY
     Route: 048
     Dates: start: 20241212
  3. AGAMREE [Suspect]
     Active Substance: VAMOROLONE
     Dosage: 3.4 ML DAILY (138 MG)
     Route: 048
     Dates: start: 20250328
  4. VITAMINS [Concomitant]
     Active Substance: VITAMINS
     Indication: Hypovitaminosis
     Dosage: 1 TABLET ONCE A DAY
     Route: 048
  5. LISINOPRIL [Concomitant]
     Active Substance: LISINOPRIL
     Indication: Cardiovascular event prophylaxis
     Dosage: ONE 2.5 MG TABLET ONCE A DAY
     Route: 048
  6. MAGNESIUM [Concomitant]
     Active Substance: MAGNESIUM
     Indication: Supplementation therapy
     Dosage: AT BEDTIME
     Route: 065
  7. SELENIUM [Concomitant]
     Active Substance: SELENIUM
     Indication: Hypovitaminosis
     Dosage: 50 MCG ONCE A DAY
     Route: 065
  8. CHILDRENS TYLENOL [Concomitant]
     Active Substance: ACETAMINOPHEN
     Indication: Pain
     Dosage: AS NEEDED
     Route: 048
  9. HYDROCORTISONE [Concomitant]
     Active Substance: HYDROCORTISONE
     Indication: Illness
     Dosage: ONE 10 MG TABLET EVERY EIGHT HOURS IF NEEDED
     Route: 048
  10. SOLU-CORTEF [Concomitant]
     Active Substance: HYDROCORTISONE SODIUM SUCCINATE
     Indication: Illness
     Dosage: 1 ML AS NEEDED
     Route: 030

REACTIONS (5)
  - Left ventricular dysfunction [Not Recovered/Not Resolved]
  - Cardiac ventricular scarring [Unknown]
  - Growth retardation [Not Recovered/Not Resolved]
  - Palpitations [Unknown]
  - Anxiety [Unknown]

NARRATIVE: CASE EVENT DATE: 20250326
